FAERS Safety Report 9427378 (Version 1)
Quarter: 2013Q3

REPORT INFORMATION
  Report Type: Report from Study
  Country: US (occurrence: US)
  Receive Date: 20130730
  Receipt Date: 20130730
  Transmission Date: 20140515
  Serious: No
  Sender: FDA-Public Use
  Company Number: US-ABBOTT-12P-163-0976338-00

PATIENT
  Age: 60 Year
  Sex: Female
  Weight: 79.45 kg

DRUGS (6)
  1. NIASPAN (COATED) [Suspect]
     Indication: BLOOD CHOLESTEROL INCREASED
     Dates: start: 20120821, end: 20120901
  2. NIASPAN (COATED) [Suspect]
     Dosage: 1/2 TAB AT HS
  3. SIMVASTATIN [Concomitant]
     Indication: PRODUCT USED FOR UNKNOWN INDICATION
  4. METFORMIN [Concomitant]
     Indication: PRODUCT USED FOR UNKNOWN INDICATION
  5. LISINOPRIL [Concomitant]
     Indication: PRODUCT USED FOR UNKNOWN INDICATION
  6. MELOXICAM [Concomitant]
     Indication: PRODUCT USED FOR UNKNOWN INDICATION

REACTIONS (4)
  - Erythema [Recovered/Resolved]
  - Pruritus generalised [Recovered/Resolved]
  - Erythema [Recovered/Resolved]
  - Pruritus generalised [Recovered/Resolved]
